FAERS Safety Report 7007141-3 (Version None)
Quarter: 2010Q3

REPORT INFORMATION
  Report Type: 
  Country: None (occurrence: None)
  Receive Date: 20100920
  Receipt Date: 20100902
  Transmission Date: 20110219
  Serious: Yes (Other)
  Sender: FDA-Public Use
  Company Number: ACO_02074_2010

PATIENT
  Sex: Female

DRUGS (3)
  1. AMPYRA [Suspect]
     Indication: MULTIPLE SCLEROSIS
     Dosage: (10 MG BID ORAL)
     Route: 048
     Dates: start: 20100901
  2. COPAXONE /03175301/ [Concomitant]
  3. CORTICOSTEROIDS FOR SYSTEMIC USE [Suspect]
     Indication: MULTIPLE SCLEROSIS
     Dosage: (DF ORAL)
     Route: 048

REACTIONS (2)
  - DISORIENTATION [None]
  - DIZZINESS [None]
